FAERS Safety Report 5817775-7 (Version None)
Quarter: 2008Q3

REPORT INFORMATION
  Report Type: 
  Country: None (occurrence: None)
  Receive Date: 20080716
  Receipt Date: 20080616
  Transmission Date: 20090109
  Serious: Yes (Other)
  Sender: FDA-Public Use
  Company Number: 2008-00628FE

PATIENT
  Age: 32 Year
  Sex: Female

DRUGS (1)
  1. MENOPUR [Suspect]
     Indication: INFERTILITY FEMALE
     Dosage: 75 IU, IM
     Route: 030
     Dates: start: 20080607, end: 20080611

REACTIONS (1)
  - HEADACHE [None]
